FAERS Safety Report 6046899-7 (Version None)
Quarter: 2009Q1

REPORT INFORMATION
  Report Type: 
  Country: None (occurrence: None)
  Receive Date: 20090122
  Receipt Date: 20090119
  Transmission Date: 20090719
  Serious: Yes (Other)
  Sender: FDA-Public Use
  Company Number: B0555330A

PATIENT
  Age: 22 Year
  Sex: Female

DRUGS (3)
  1. LAMICTAL [Suspect]
     Indication: EPILEPSY
     Route: 048
     Dates: start: 20010101
  2. CONVULEX [Suspect]
     Indication: EPILEPSY
     Route: 048
     Dates: start: 20010101
  3. TENOFOVIR DISOPROXIL FUMARATE [Suspect]
     Indication: HEPATITIS B
     Route: 048
     Dates: start: 20081219, end: 20090108

REACTIONS (2)
  - DRUG INTERACTION [None]
  - EPILEPSY [None]
